FAERS Safety Report 9008853 (Version 2)
Quarter: 2013Q1

REPORT INFORMATION
  Report Type: Spontaneous
  Country: US (occurrence: US)
  Receive Date: 20130111
  Receipt Date: 20130212
  Transmission Date: 20140127
  Serious: No
  Sender: FDA-Public Use
  Company Number: US-ASTRAZENECA-2012SE96531

PATIENT
  Age: 53 Year
  Sex: Female
  Weight: 74.8 kg

DRUGS (9)
  1. SYMBICORT [Suspect]
     Indication: ASTHMA
     Dosage: 80/4.5 MCG, 2 PUFFS BID
     Route: 055
     Dates: start: 2011, end: 2012
  2. SYMBICORT [Suspect]
     Indication: ASTHMA
     Dosage: 80/4.5,2  AT LEAST 1 PUFF DAILY
     Route: 055
     Dates: start: 2012
  3. SYMBICORT [Suspect]
     Indication: ASTHMA
     Dosage: 80/4.5, INCREASE IT TO 1 OR 2 PUFFS BID FOR ASTHMA EXACERBATION
     Route: 055
     Dates: start: 2012
  4. SYMBICORT [Suspect]
     Indication: ASTHMA
     Dosage: 160/4.5 MCG, UNKNOWN
     Route: 055
  5. SYMBICORT [Suspect]
     Indication: ASTHMA
     Dosage: 80/4.5 MCG, 2 PUFFS BID
     Route: 055
     Dates: start: 20121120
  6. LORATIDINE [Concomitant]
     Indication: HYPERSENSITIVITY
     Route: 048
  7. MONTELUKAST [Concomitant]
     Indication: HYPERSENSITIVITY
     Route: 048
     Dates: start: 2012
  8. VITAMINS [Concomitant]
  9. FLOVENT [Concomitant]

REACTIONS (9)
  - Lung disorder [Unknown]
  - Pertussis [Recovered/Resolved]
  - Sinusitis [Recovered/Resolved]
  - Chest discomfort [Recovering/Resolving]
  - Cough [Unknown]
  - Cough [Recovering/Resolving]
  - Drug dose omission [Recovered/Resolved]
  - Off label use [Unknown]
  - Drug ineffective [Recovered/Resolved]
